FAERS Safety Report 12185392 (Version 1)
Quarter: 2016Q1

REPORT INFORMATION
  Report Type: Spontaneous
  Country: US (occurrence: US)
  Receive Date: 20160316
  Receipt Date: 20160316
  Transmission Date: 20160526
  Serious: No
  Sender: FDA-Public Use
  Company Number: US-009507513-1603USA005731

PATIENT
  Sex: Male

DRUGS (2)
  1. JANUMET [Suspect]
     Active Substance: METFORMIN HYDROCHLORIDE\SITAGLIPTIN PHOSPHATE
     Dosage: UNK
     Dates: start: 2008
  2. LANTUS [Concomitant]
     Active Substance: INSULIN GLARGINE
     Dosage: 10-12 UNITS

REACTIONS (1)
  - Drug effect decreased [Unknown]
